FAERS Safety Report 8027688-0 (Version None)
Quarter: 2011Q4

REPORT INFORMATION
  Report Type: 
  Country: None (occurrence: None)
  Receive Date: 20111130
  Receipt Date: 20110422
  Transmission Date: 20120403
  Serious: Yes (Other)
  Sender: FDA-Public Use
  Company Number: US201010006104

PATIENT
  Age: 57 Year
  Sex: Female

DRUGS (2)
  1. BYETTA [Suspect]
     Indication: TYPE 2 DIABETES MELLITUS
     Dosage: 5 UG, BID, SUBCUTANEOUS
     Route: 058
  2. INSULIN [Concomitant]

REACTIONS (5)
  - HYPERSENSITIVITY [None]
  - DYSGEUSIA [None]
  - PHARYNGEAL OEDEMA [None]
  - DYSPNOEA [None]
  - GASTROINTESTINAL DISORDER [None]
